FAERS Safety Report 17088978 (Version 3)
Quarter: 2020Q1

REPORT INFORMATION
  Report Type: Spontaneous
  Country: GB (occurrence: US)
  Receive Date: 20191128
  Receipt Date: 20200220
  Transmission Date: 20200409
  Serious: Yes (Other)
  Sender: FDA-Public Use
  Company Number: GB-ASTRAZENECA-2019SE12381

PATIENT
  Age: 26 Year
  Sex: Female

DRUGS (8)
  1. COTRIMOXAZOLE [Suspect]
     Active Substance: SULFAMETHOXAZOLE\TRIMETHOPRIM
     Dosage: 480 MG (THREE DAYS OF WEEK TWIC E A DAY)
     Route: 065
  2. SULFAMETHOXAZOLE;TRIMETHOPRIM [Concomitant]
     Active Substance: SULFAMETHOXAZOLE\TRIMETHOPRIM
     Dosage: 480.0MG UNKNOWN
  3. PARACETAMOL [Suspect]
     Active Substance: ACETAMINOPHEN
     Dosage: 1.0G UNKNOWN
     Route: 065
  4. OMEPRAZOLE. [Suspect]
     Active Substance: OMEPRAZOLE
     Dosage: 20.0MG UNKNOWN
     Route: 048
  5. CHLORPHENAMINE C [Suspect]
     Active Substance: CHLORPHENIRAMINE MALEATE
     Dosage: 4.0MG UNKNOWN
     Route: 048
  6. ALEMTUZUMAB [Suspect]
     Active Substance: ALEMTUZUMAB
     Indication: MULTIPLE SCLEROSIS
     Dosage: 12.0MG UNKNOWN
     Route: 041
     Dates: start: 2018
  7. ACYCLOVIR. [Suspect]
     Active Substance: ACYCLOVIR
     Dosage: 200.0MG UNKNOWN
     Route: 065
  8. METHYLPREDNISOLONE. [Suspect]
     Active Substance: METHYLPREDNISOLONE
     Dosage: 1.0G UNKNOWN
     Route: 042

REACTIONS (9)
  - Chest discomfort [Recovered/Resolved]
  - Headache [Recovered/Resolved]
  - Thyroid disorder [Unknown]
  - Rash [Recovered/Resolved]
  - Basedow^s disease [Unknown]
  - Pruritus [Recovered/Resolved]
  - Anaemia [Not Recovered/Not Resolved]
  - Fatigue [Unknown]
  - Rash [Recovered/Resolved]

NARRATIVE: CASE EVENT DATE: 20190107
